FAERS Safety Report 8508322-X (Version None)
Quarter: 2012Q3

REPORT INFORMATION
  Report Type: 
  Country: None (occurrence: None)
  Receive Date: 20120713
  Receipt Date: 20120704
  Transmission Date: 20120928
  Serious: Yes (Other)
  Sender: FDA-Public Use
  Company Number: CA-JNJFOC-20120701995

PATIENT
  Sex: Female
  Weight: 77 kg

DRUGS (13)
  1. PRADAXA [Concomitant]
     Route: 065
  2. PREVACID [Concomitant]
     Route: 065
  3. LASIX [Concomitant]
     Route: 065
  4. PLAVIX [Concomitant]
     Route: 065
  5. POTASSIUM CHLORIDE [Concomitant]
     Route: 065
  6. CALCIUM [Concomitant]
     Route: 065
  7. MULTIPLE VITAMIN [Concomitant]
     Route: 065
  8. REMICADE [Suspect]
     Indication: CROHN'S DISEASE
     Route: 042
     Dates: start: 20100504
  9. VITAMIN D [Concomitant]
     Route: 065
  10. IRON [Concomitant]
     Route: 065
  11. FLORINEF [Concomitant]
     Route: 065
  12. CRESTOR [Concomitant]
     Route: 065
  13. LOVAZA [Concomitant]
     Route: 065

REACTIONS (1)
  - CATARACT [None]
